FAERS Safety Report 5677665-X (Version None)
Quarter: 2008Q1

REPORT INFORMATION
  Report Type: 
  Country: None (occurrence: None)
  Receive Date: 20080324
  Receipt Date: 20080310
  Transmission Date: 20080703
  Serious: Yes (Disabling)
  Sender: FDA-Public Use
  Company Number: US-ABBOTT-08P-163-0435126-00

PATIENT
  Sex: Female
  Weight: 88.076 kg

DRUGS (4)
  1. DEPAKENE [Suspect]
     Indication: PSYCHOTIC DISORDER
     Route: 048
     Dates: start: 20060809, end: 20061217
  2. DEPAKENE [Suspect]
     Indication: DELUSIONAL DISORDER, UNSPECIFIED TYPE
     Route: 048
  3. DEPAKENE [Suspect]
     Route: 048
     Dates: end: 20061201
  4. SALBUTAMOL SULFATE [Concomitant]
     Indication: DRUG USE FOR UNKNOWN INDICATION

REACTIONS (16)
  - ALOPECIA [None]
  - CHOKING SENSATION [None]
  - DEPRESSION [None]
  - DRUG WITHDRAWAL SYNDROME [None]
  - DYSMENORRHOEA [None]
  - DYSPHAGIA [None]
  - EMOTIONAL DISTRESS [None]
  - GENERAL PHYSICAL CONDITION ABNORMAL [None]
  - MENSTRUATION IRREGULAR [None]
  - MUSCULOSKELETAL STIFFNESS [None]
  - OBESITY [None]
  - SUFFOCATION FEELING [None]
  - TARDIVE DYSKINESIA [None]
  - UNEVALUABLE EVENT [None]
  - WEIGHT INCREASED [None]
  - WEIGHT LOSS POOR [None]
